FAERS Safety Report 14629814 (Version 2)
Quarter: 2018Q4

REPORT INFORMATION
  Report Type: Spontaneous
  Country: FR (occurrence: FR)
  Receive Date: 20180313
  Receipt Date: 20181023
  Transmission Date: 20190204
  Serious: No
  Sender: FDA-Public Use
  Company Number: FR-MERCK KGAA-2043607

PATIENT
  Age: 55 Year
  Sex: Female

DRUGS (1)
  1. EUTHYROX [Suspect]
     Active Substance: LEVOTHYROXINE SODIUM
     Indication: POST PROCEDURAL HYPOTHYROIDISM

REACTIONS (28)
  - Alopecia [None]
  - Crying [None]
  - Asthenia [None]
  - Myalgia [None]
  - Fatigue [None]
  - Pain [None]
  - Blood thyroid stimulating hormone abnormal [None]
  - Somnolence [None]
  - Loss of personal independence in daily activities [None]
  - Aggression [None]
  - Depression [None]
  - Impaired work ability [None]
  - Loss of libido [None]
  - Negative thoughts [None]
  - Thyroxine increased [Recovered/Resolved]
  - Weight increased [None]
  - Feeling abnormal [None]
  - Thyroglobulin decreased [Not Recovered/Not Resolved]
  - Disturbance in attention [None]
  - Social avoidant behaviour [None]
  - Muscle spasms [None]
  - Nervousness [None]
  - Affective disorder [None]
  - Vertigo [None]
  - Insomnia [None]
  - Attention deficit/hyperactivity disorder [None]
  - Memory impairment [None]
  - Muscular weakness [None]

NARRATIVE: CASE EVENT DATE: 20170405
